FAERS Safety Report 5370073-0 (Version None)
Quarter: 2007Q2

REPORT INFORMATION
  Report Type: 
  Country: None (occurrence: None)
  Receive Date: 20070614
  Receipt Date: 20070316
  Transmission Date: 20071010
  Serious: Yes (Death)
  Sender: FDA-Public Use
  Company Number: M-07-0105

PATIENT
  Age: 61 Year
  Sex: Female
  Weight: 63.5036 kg

DRUGS (4)
  1. KLOR-CON [Suspect]
     Indication: HYPOKALAEMIA
     Dosage: 40 MEQ, TID, PO
     Route: 048
     Dates: start: 20050701, end: 20050824
  2. DIGOXIN [Concomitant]
  3. COUMADIN [Concomitant]
  4. XANAX [Concomitant]

REACTIONS (3)
  - CARDIAC ARREST [None]
  - HYPERKALAEMIA [None]
  - OVERDOSE [None]
